FAERS Safety Report 8584654 (Version 3)
Quarter: 2014Q1

REPORT INFORMATION
  Report Type: Report from Study
  Country: US (occurrence: US)
  Receive Date: 20120529
  Receipt Date: 20140305
  Transmission Date: 20141002
  Serious: Yes (Hospitalization, Other)
  Sender: FDA-Public Use
  Company Number: US-ELI_LILLY_AND_COMPANY-US201204001145

PATIENT
  Sex: Female

DRUGS (12)
  1. TERIPARATIDE [Suspect]
     Indication: OSTEOPOROSIS
     Dosage: 20 UG, QD
     Route: 065
     Dates: start: 20120209
  2. TERIPARATIDE [Suspect]
     Dosage: 20 UG, QD
     Route: 065
  3. TERIPARATIDE [Suspect]
     Dosage: UNK, QD
     Route: 065
  4. MAXZIDE [Concomitant]
     Indication: PRODUCT USED FOR UNKNOWN INDICATION
     Route: 065
  5. NEXIUM                             /01479302/ [Concomitant]
     Indication: PRODUCT USED FOR UNKNOWN INDICATION
     Route: 065
  6. PRAVASTATINE [Concomitant]
     Indication: PRODUCT USED FOR UNKNOWN INDICATION
     Route: 065
  7. XARELTO [Concomitant]
     Indication: PRODUCT USED FOR UNKNOWN INDICATION
     Route: 065
  8. CALTRATE                           /00751519/ [Concomitant]
     Indication: PRODUCT USED FOR UNKNOWN INDICATION
     Route: 065
  9. POTASSIUM [Concomitant]
     Indication: PRODUCT USED FOR UNKNOWN INDICATION
     Route: 065
  10. PREDNISONE [Concomitant]
     Indication: PRODUCT USED FOR UNKNOWN INDICATION
     Route: 065
  11. SINGULAIR [Concomitant]
     Indication: PRODUCT USED FOR UNKNOWN INDICATION
     Route: 065
  12. FLONASE [Concomitant]
     Indication: SINUS DISORDER
     Route: 065

REACTIONS (7)
  - Rotator cuff syndrome [Recovered/Resolved]
  - Osteoarthritis [Not Recovered/Not Resolved]
  - Intraocular pressure increased [Unknown]
  - Macular degeneration [Not Recovered/Not Resolved]
  - Glaucoma [Not Recovered/Not Resolved]
  - Constipation [Recovered/Resolved]
  - Muscle spasms [Unknown]
